FAERS Safety Report 5330247-1 (Version None)
Quarter: 2007Q2

REPORT INFORMATION
  Report Type: 
  Country: None (occurrence: None)
  Receive Date: 20070521
  Receipt Date: 20070509
  Transmission Date: 20071010
  Serious: Yes (Life-Threatening, Hospitalization)
  Sender: FDA-Public Use
  Company Number: JP-SANOFI-SYNTHELABO-A01200704511

PATIENT
  Sex: Male

DRUGS (4)
  1. KERLONG [Suspect]
     Indication: HYPERTENSION
     Dosage: 180 TABLETS
     Route: 048
     Dates: start: 20070423, end: 20070423
  2. KERLONG [Suspect]
     Indication: SUICIDE ATTEMPT
     Dosage: 180 TABLETS
     Route: 048
     Dates: start: 20070423, end: 20070423
  3. NORVASC [Suspect]
     Indication: SUICIDE ATTEMPT
     Dosage: 90 TABLETS
     Route: 048
     Dates: start: 20070423, end: 20070423
  4. NORVASC [Suspect]
     Indication: HYPERTENSION
     Dosage: 90 TABLETS
     Route: 048
     Dates: start: 20070423, end: 20070423

REACTIONS (2)
  - INTENTIONAL OVERDOSE [None]
  - SHOCK [None]
